FAERS Safety Report 18343129 (Version 2)
Quarter: 2022Q3

REPORT INFORMATION
  Report Type: Spontaneous
  Country: CA (occurrence: CA)
  Receive Date: 20201005
  Receipt Date: 20220815
  Transmission Date: 20221027
  Serious: Yes (Life-Threatening, Other)
  Sender: FDA-Public Use
  Company Number: None

PATIENT
  Age: 4 Year
  Sex: Male
  Weight: 15 kg

DRUGS (27)
  1. METHOTREXATE [Suspect]
     Active Substance: METHOTREXATE
     Indication: Acute lymphocytic leukaemia
     Route: 042
  2. IMATINIB [Suspect]
     Active Substance: IMATINIB
     Indication: Acute lymphocytic leukaemia
     Dosage: FREQUENCY: 1 EVERY 1 DAYS, POWDER FOR SOLUTION
     Route: 048
  3. CYCLOPHOSPHAMIDE [Suspect]
     Active Substance: CYCLOPHOSPHAMIDE
     Indication: Acute lymphocytic leukaemia
     Dosage: FREQUENCY:1 EVERY 12 HOURS, DOSAGE FORM: POWDER FOR SOLUTION INTRAVENOUS, POWDER FOR SOLUTION
     Route: 042
  4. CYTARABINE [Suspect]
     Active Substance: CYTARABINE
     Indication: Acute lymphocytic leukaemia
     Dosage: FREQUENCY: 1 EVERY 12 HOURS, INJECTION, DOSAGE FORM: SOLUTION INTRATHECAL, POWDER FOR SOLUTION
     Route: 042
  5. HYDROCORTISONE [Suspect]
     Active Substance: HYDROCORTISONE
     Indication: Acute lymphocytic leukaemia
     Dosage: FREQUENCY: ONCE, LOTION, 1 EVERY 1 DAYS
     Route: 037
  6. ASPARAGINASE [Suspect]
     Active Substance: ASPARAGINASE
     Indication: Product used for unknown indication
     Dosage: DOSAGE FORM: POWDER FOR SOLUTION , 1 EVERY 12 HOURS
     Route: 042
  7. VINCRISTINE SULFATE [Suspect]
     Active Substance: VINCRISTINE SULFATE
     Indication: Acute lymphocytic leukaemia
     Dosage: FREQUENCY: ONCE, POWDER FOR SOLUTION
     Route: 042
  8. SODIUM [Concomitant]
     Active Substance: SODIUM
  9. ALBUTEROL [Concomitant]
     Active Substance: ALBUTEROL
  10. RANITIDINE [Concomitant]
     Active Substance: RANITIDINE
     Route: 048
  11. POTASSIUM [Concomitant]
     Active Substance: POTASSIUM
  12. ONDANSETRON [Concomitant]
     Active Substance: ONDANSETRON
     Route: 048
  13. METOCLOPRAMIDE [Concomitant]
     Active Substance: METOCLOPRAMIDE
  14. MELATONIN [Concomitant]
     Active Substance: MELATONIN
  15. MAGNESIUM [Concomitant]
     Active Substance: MAGNESIUM
  16. LEUCOVORIN [Concomitant]
     Active Substance: LEUCOVORIN
  17. LANSOPRAZOLE [Concomitant]
     Active Substance: LANSOPRAZOLE
     Dosage: CAPSULE, DELAYED RELEASE
  18. FAMOTIDINE [Concomitant]
     Active Substance: FAMOTIDINE
     Dosage: CAPSULE (DELAYED RELEASE)
     Route: 048
  19. DIPHENHYDRAMINE [Concomitant]
     Active Substance: DIPHENHYDRAMINE
     Route: 048
  20. DIMENHYDRINATE [Concomitant]
     Active Substance: DIMENHYDRINATE
  21. DEXAMETHASONE [Concomitant]
     Active Substance: DEXAMETHASONE
  22. CICLESONIDE [Concomitant]
     Active Substance: CICLESONIDE
  23. AMLODIPINE [Concomitant]
     Active Substance: AMLODIPINE BESYLATE
     Route: 048
  24. CEFTAZIDIME [Concomitant]
     Active Substance: CEFTAZIDIME
     Dosage: POWDER FOR SOLUTION
  25. METHOTREXATE [Suspect]
     Active Substance: METHOTREXATE
     Indication: Acute lymphocytic leukaemia
     Dosage: FREQUENCY: ONCE
     Route: 037
  26. CYTARABINE [Suspect]
     Active Substance: CYTARABINE
     Indication: Acute lymphocytic leukaemia
     Dosage: FREQUENCY: ONCE, INJECTION, DOSAGE FORM: SOLUTION INTRATHECAL
     Route: 037
  27. METHOTREXATE [Suspect]
     Active Substance: METHOTREXATE
     Indication: Acute lymphocytic leukaemia
     Route: 042

REACTIONS (4)
  - Decreased appetite [Recovered/Resolved]
  - Incorrect route of product administration [Unknown]
  - Aplastic anaemia [Recovered/Resolved]
  - Stomatitis [Recovered/Resolved]
